FAERS Safety Report 5129734-0 (Version None)
Quarter: 2006Q4

REPORT INFORMATION
  Report Type: 
  Country: None (occurrence: None)
  Receive Date: 20061018
  Receipt Date: 20061006
  Transmission Date: 20070319
  Serious: Yes (Other)
  Sender: FDA-Public Use
  Company Number: US-ROCHE-467096

PATIENT
  Age: 58 Year
  Sex: Male

DRUGS (1)
  1. INTERFERON ALFA [Suspect]
     Route: 065

REACTIONS (1)
  - VITILIGO [None]
